FAERS Safety Report 24084730 (Version 2)
Quarter: 2024Q3

REPORT INFORMATION
  Report Type: Spontaneous
  Country: US (occurrence: US)
  Receive Date: 20240712
  Receipt Date: 20240906
  Transmission Date: 20241016
  Serious: Yes (Hospitalization)
  Sender: DOMPE FARMACEUTICI
  Company Number: US-FARMAPROD-202406-2210

PATIENT
  Age: 92 Year
  Sex: Female

DRUGS (31)
  1. OXERVATE [Suspect]
     Active Substance: CENEGERMIN-BKBJ
     Indication: Neurotrophic keratopathy
     Route: 047
     Dates: start: 20240516
  2. OXERVATE [Suspect]
     Active Substance: CENEGERMIN-BKBJ
  3. OXERVATE [Suspect]
     Active Substance: CENEGERMIN-BKBJ
  4. OXERVATE [Suspect]
     Active Substance: CENEGERMIN-BKBJ
  5. MOXIFLOXACIN [Concomitant]
     Active Substance: MOXIFLOXACIN
  6. MIDODRINE HYDROCHLORIDE [Concomitant]
     Active Substance: MIDODRINE HYDROCHLORIDE
  7. MELATONIN [Concomitant]
     Active Substance: MELATONIN
  8. ACETAMINOPHEN [Concomitant]
     Active Substance: ACETAMINOPHEN
  9. ELDERBERRY IMMUNE HEALTH [Concomitant]
  10. VITAMIN C [Concomitant]
     Active Substance: ASCORBIC ACID
  11. THIAMINE HYDROCHLORIDE [Concomitant]
     Active Substance: THIAMINE HYDROCHLORIDE
  12. COENZYME Q10 [Concomitant]
     Active Substance: DIETARY SUPPLEMENT\UBIDECARENONE
  13. CALCIUM 600-VIT D3 [Concomitant]
     Dosage: 600 MG-20
  14. MAGNESIUM [Concomitant]
     Active Substance: MAGNESIUM
     Dosage: 600 MG-20
  15. ZINC [Concomitant]
     Active Substance: ZINC
     Dosage: 600 MG-20
  16. PANTOPRAZOLE SODIUM [Concomitant]
     Active Substance: PANTOPRAZOLE SODIUM
  17. LASIX [Concomitant]
     Active Substance: FUROSEMIDE
     Dosage: 600 MG-20
  18. POTASSIUM CHLORIDE [Concomitant]
     Active Substance: POTASSIUM CHLORIDE
  19. ELIQUIS [Concomitant]
     Active Substance: APIXABAN
     Dosage: 600 MG-20
  20. AMIODARONE HYDROCHLORIDE [Concomitant]
     Active Substance: AMIODARONE HYDROCHLORIDE
     Dosage: 600 MG-20
  21. LEVOTHYROXINE SODIUM [Concomitant]
     Active Substance: LEVOTHYROXINE SODIUM
     Dosage: 600 MG-20
  22. VALACYCLOVIR [Concomitant]
     Active Substance: VALACYCLOVIR HYDROCHLORIDE
     Dosage: 600 MG-20
  23. UNSPECIFIED INGREDIENT [Concomitant]
     Active Substance: UNSPECIFIED INGREDIENT
     Dosage: 600 MG-20
  24. LOTEMAX [Concomitant]
     Active Substance: LOTEPREDNOL ETABONATE
  25. SYSTANE (HYPROMELLOSE 2910 (4000 MPA.S)) [Concomitant]
     Active Substance: HYPROMELLOSE 2910 (4000 MPA.S)
     Dosage: 0.3 %-0.4%
  26. XIIDRA [Concomitant]
     Active Substance: LIFITEGRAST
  27. COMBIGAN [Concomitant]
     Active Substance: BRIMONIDINE TARTRATE\TIMOLOL MALEATE
     Dosage: 0.2%-0.5%
  28. LOTEMAX [Concomitant]
     Active Substance: LOTEPREDNOL ETABONATE
  29. TYLENOL [Concomitant]
     Active Substance: ACETAMINOPHEN
  30. TYLENOL [Concomitant]
     Active Substance: ACETAMINOPHEN
  31. FLONASE ALLERGY RELIEF [Concomitant]
     Active Substance: FLUTICASONE PROPIONATE

REACTIONS (12)
  - Hypotension [Unknown]
  - Accidental overdose [Unknown]
  - Sinus congestion [Unknown]
  - Eye pain [Not Recovered/Not Resolved]
  - Ocular hyperaemia [Not Recovered/Not Resolved]
  - Headache [Not Recovered/Not Resolved]
  - Eye irritation [Not Recovered/Not Resolved]
  - Lacrimation increased [Unknown]
  - Eye swelling [Unknown]
  - Swelling of eyelid [Unknown]
  - Vision blurred [Unknown]
  - Photophobia [Unknown]

NARRATIVE: CASE EVENT DATE: 20240601
